FAERS Safety Report 6209926-X (Version None)
Quarter: 2009Q2

REPORT INFORMATION
  Report Type: 
  Country: None (occurrence: None)
  Receive Date: 20090601
  Receipt Date: 20090519
  Transmission Date: 20091009
  Serious: Yes (Other)
  Sender: FDA-Public Use
  Company Number: MX-PFIZER INC-2009216621

PATIENT
  Age: 84 Year

DRUGS (2)
  1. DETRUSITOL SR [Suspect]
     Indication: HYPERTONIC BLADDER
     Dosage: 4 MG, 1X/DAY
     Route: 048
     Dates: start: 20090428, end: 20090428
  2. ENALAPRIL [Concomitant]
     Dosage: UNK
     Route: 048

REACTIONS (3)
  - ANXIETY [None]
  - COGNITIVE DISORDER [None]
  - INSOMNIA [None]
